FAERS Safety Report 7109731-6 (Version None)
Quarter: 2010Q4

REPORT INFORMATION
  Report Type: 
  Country: None (occurrence: None)
  Receive Date: 20101116
  Receipt Date: 20101116
  Transmission Date: 20110411
  Serious: Yes (Other)
  Sender: FDA-Public Use
  Company Number: None

PATIENT
  Sex: Female
  Weight: 103.8737 kg

DRUGS (1)
  1. OXYCODON ER [Suspect]
     Indication: BACK PAIN
     Dosage: 80'S 3XD  3X DAILY
     Dates: start: 19920101, end: 20100101

REACTIONS (3)
  - DRUG INEFFECTIVE [None]
  - PAIN [None]
  - PRODUCT FORMULATION ISSUE [None]
